FAERS Safety Report 5463313-0 (Version None)
Quarter: 2007Q3

REPORT INFORMATION
  Report Type: 
  Country: None (occurrence: None)
  Receive Date: 20070920
  Receipt Date: 20070912
  Transmission Date: 20080115
  Serious: Yes (Other)
  Sender: FDA-Public Use
  Company Number: PHBS2007CH15407

PATIENT
  Age: 50 Year
  Sex: Male

DRUGS (1)
  1. MIACALCIN [Suspect]
     Indication: OSTEOPOROSIS
     Route: 045
     Dates: start: 20070907, end: 20070909

REACTIONS (3)
  - APPLICATION SITE IRRITATION [None]
  - FACIAL PALSY [None]
  - PAIN IN EXTREMITY [None]
